FAERS Safety Report 9492534 (Version 1)
Quarter: 2013Q3

REPORT INFORMATION
  Report Type: Report from Study
  Country: BR (occurrence: BR)
  Receive Date: 20130830
  Receipt Date: 20130830
  Transmission Date: 20140515
  Serious: Yes (Hospitalization, Other)
  Sender: FDA-Public Use
  Company Number: PHHY2013BR094843

PATIENT
  Sex: Male
  Weight: 82 kg

DRUGS (1)
  1. EXELON PATCH [Suspect]
     Dosage: 4.6 MG / 24 HOURS (5CM2)
     Route: 062

REACTIONS (9)
  - Fall [Not Recovered/Not Resolved]
  - Pneumonia [Not Recovered/Not Resolved]
  - Delirium [Not Recovered/Not Resolved]
  - Dementia [Unknown]
  - Dementia Alzheimer^s type [Unknown]
  - Parkinson^s disease [Unknown]
  - Drug intolerance [Unknown]
  - Insomnia [Not Recovered/Not Resolved]
  - Agitation [Not Recovered/Not Resolved]
